FAERS Safety Report 13790175 (Version 1)
Quarter: 2017Q3

REPORT INFORMATION
  Report Type: Spontaneous
  Country: US (occurrence: US)
  Receive Date: 20170725
  Receipt Date: 20170725
  Transmission Date: 20171127
  Serious: No
  Sender: FDA-Public Use
  Company Number: US-UNITED THERAPEUTICS-UNT-2016-014421

PATIENT
  Age: 43 Year
  Sex: Female
  Weight: 56.24 kg

DRUGS (2)
  1. REMODULIN [Suspect]
     Active Substance: TREPROSTINIL
     Dosage: 0.04 ?G/KG, CONTINUING
     Route: 058
  2. REMODULIN [Suspect]
     Active Substance: TREPROSTINIL
     Indication: PULMONARY HYPERTENSION
     Dosage: 0.01 ?G/KG, CONTINUING
     Route: 058
     Dates: start: 20160908

REACTIONS (17)
  - Diarrhoea [Unknown]
  - Infusion site erythema [Unknown]
  - Back pain [Unknown]
  - Gait disturbance [Unknown]
  - Pain in jaw [Unknown]
  - Fatigue [Unknown]
  - Headache [Unknown]
  - Infusion site pain [Recovering/Resolving]
  - Heart rate increased [Unknown]
  - Oedema [Unknown]
  - Device dislocation [Unknown]
  - Chills [Unknown]
  - Pain in extremity [Unknown]
  - Chest discomfort [Unknown]
  - Dyspnoea exertional [Unknown]
  - Infusion site swelling [Recovering/Resolving]
  - Neuropathy peripheral [Unknown]

NARRATIVE: CASE EVENT DATE: 201609
